FAERS Safety Report 9574611 (Version 2)
Quarter: 2013Q4

REPORT INFORMATION
  Report Type: Spontaneous
  Country: US (occurrence: US)
  Receive Date: 20131001
  Receipt Date: 20131001
  Transmission Date: 20140711
  Serious: Yes (Other)
  Sender: FDA-Public Use
  Company Number: US-ELI_LILLY_AND_COMPANY-US201204009635

PATIENT
  Age: 60 Year
  Sex: Female

DRUGS (9)
  1. CYMBALTA [Suspect]
     Indication: PAIN
     Dosage: 30 MG, QD
     Route: 065
     Dates: start: 201202
  2. CYMBALTA [Suspect]
     Indication: DEPRESSION
     Dosage: 20 MG, QD
     Route: 065
  3. CYMBALTA [Suspect]
     Dosage: 20 MG, QOD
     Route: 065
  4. CYMBALTA [Suspect]
     Dosage: 20 MG, QD
     Route: 065
  5. SEROQUEL [Concomitant]
     Dosage: UNK, UNKNOWN
     Route: 065
  6. OXYCONTIN [Concomitant]
     Dosage: 20 MG, TID
     Route: 065
  7. AMBIEN [Concomitant]
     Dosage: UNK, UNKNOWN
     Route: 065
  8. OXYCODONE [Concomitant]
     Dosage: UNK, OTHER: 10 TO 15MG DAILY
     Route: 065
  9. LORAZEPAM [Concomitant]
     Dosage: UNK, UNKNOWN
     Route: 065

REACTIONS (35)
  - Blister [Unknown]
  - Skin exfoliation [Recovering/Resolving]
  - Oral mucosal exfoliation [Recovering/Resolving]
  - Gastrointestinal disorder [Not Recovered/Not Resolved]
  - Swelling face [Not Recovered/Not Resolved]
  - Herpes zoster [Unknown]
  - Arthralgia [Unknown]
  - Pyrexia [Unknown]
  - Ocular hyperaemia [Recovering/Resolving]
  - Electrolyte imbalance [Unknown]
  - Blood magnesium decreased [Unknown]
  - Wrong technique in drug usage process [Unknown]
  - Skin burning sensation [Unknown]
  - Blood pressure fluctuation [Unknown]
  - Blood pressure decreased [Unknown]
  - Tachycardia [Unknown]
  - Oral mucosal erythema [Recovering/Resolving]
  - Erythema [Recovering/Resolving]
  - Influenza like illness [Unknown]
  - Dehydration [Unknown]
  - Nausea [Unknown]
  - Abdominal pain upper [Unknown]
  - Nocturia [Unknown]
  - Dyspepsia [Not Recovered/Not Resolved]
  - Fatigue [Unknown]
  - Oropharyngeal pain [Not Recovered/Not Resolved]
  - Dry mouth [Unknown]
  - Hypersensitivity [Unknown]
  - Pollakiuria [Unknown]
  - Tachycardia [Unknown]
  - Decreased appetite [Unknown]
  - Insomnia [Unknown]
  - Palpitations [Unknown]
  - Blood glucose increased [Unknown]
  - Back pain [Unknown]
